FAERS Safety Report 6314895-8 (Version None)
Quarter: 2009Q3

REPORT INFORMATION
  Report Type: 
  Country: None (occurrence: None)
  Receive Date: 20090819
  Receipt Date: 20090810
  Transmission Date: 20100115
  Serious: Yes (Hospitalization)
  Sender: FDA-Public Use
  Company Number: JP-ABBOTT-09P-087-0587614-00

PATIENT
  Sex: Female
  Weight: 45 kg

DRUGS (6)
  1. LEUPLIN DEPOT- PED [Suspect]
     Indication: PRECOCIOUS PUBERTY
     Route: 058
     Dates: start: 20050601
  2. EXCEGRAN [Concomitant]
     Indication: EPILEPSY
     Route: 048
     Dates: start: 20050301
  3. EXCEGRAN [Concomitant]
     Indication: PROPHYLAXIS
  4. RIVOTRIL [Concomitant]
     Indication: EPILEPSY
     Route: 048
     Dates: start: 20050401
  5. RIVOTRIL [Concomitant]
     Indication: PROPHYLAXIS
  6. ONON [Concomitant]
     Indication: DRUG USE FOR UNKNOWN INDICATION
     Route: 048
     Dates: start: 20090501

REACTIONS (4)
  - ENCEPHALITIS INFLUENZAL [None]
  - ENCEPHALOPATHY [None]
  - EPILEPSY [None]
  - HAEMOLYSIS [None]
